FAERS Safety Report 15069903 (Version 1)
Quarter: 2018Q2

REPORT INFORMATION
  Report Type: Report from Study
  Country: US (occurrence: US)
  Receive Date: 20180626
  Receipt Date: 20180626
  Transmission Date: 20180711
  Serious: No
  Sender: FDA-Public Use
  Company Number: US-AMGEN-USASP2014064067

PATIENT
  Age: 56 Year
  Sex: Male

DRUGS (15)
  1. DOXORUBICIN [Concomitant]
     Active Substance: DOXORUBICIN
     Dosage: 105 MG, UNK
     Route: 041
     Dates: start: 20120320
  2. ZOFRAN [Concomitant]
     Active Substance: ONDANSETRON HYDROCHLORIDE
     Dosage: 16 MG, UNK
     Dates: start: 20120320
  3. DEXAMETHASONE. [Concomitant]
     Active Substance: DEXAMETHASONE
     Dosage: 10 MG, UNK
     Route: 041
     Dates: start: 20120522
  4. VINCRISTINE [Concomitant]
     Active Substance: VINCRISTINE
     Dosage: 2 MG, UNK
     Route: 041
     Dates: start: 20120320
  5. NEULASTA [Suspect]
     Active Substance: PEGFILGRASTIM
     Dosage: 4 MG, UNK
     Route: 058
     Dates: start: 20120502
  6. RITUXAN [Suspect]
     Active Substance: RITUXIMAB
     Dosage: 825 MG, UNK
     Route: 041
     Dates: start: 20120522
  7. PREDNISONE. [Concomitant]
     Active Substance: PREDNISONE
     Dosage: 100 MG, UNK
     Route: 048
     Dates: start: 20120320
  8. TYLENOL [Concomitant]
     Active Substance: ACETAMINOPHEN
     Dosage: 650 MG, UNK
     Route: 048
     Dates: start: 20120320
  9. HEPARIN FLUSH [Concomitant]
     Active Substance: HEPARIN SODIUM
     Dosage: UNK
  10. NEULASTA [Suspect]
     Active Substance: PEGFILGRASTIM
     Indication: PRODUCT USED FOR UNKNOWN INDICATION
     Dosage: 6 MG, UNK
     Route: 058
     Dates: start: 20120321, end: 20120411
  11. RITUXAN [Suspect]
     Active Substance: RITUXIMAB
     Indication: LUNG NEOPLASM MALIGNANT
     Dosage: 810 MG, (CYCLE3 DAY 1)
     Route: 041
     Dates: start: 20120501
  12. RITUXAN [Suspect]
     Active Substance: RITUXIMAB
     Indication: B-CELL LYMPHOMA
     Dosage: 790 MG, (790 MG,CYCLE 1 DAY 1)
     Route: 041
     Dates: start: 20120320
  13. CATHFLO ACTIVASE [Suspect]
     Active Substance: ALTEPLASE
     Indication: PRODUCT USED FOR UNKNOWN INDICATION
     Dosage: 2 MG, UNK
     Route: 042
     Dates: start: 20120501
  14. CYTOXAN [Concomitant]
     Active Substance: CYCLOPHOSPHAMIDE
     Dosage: 1575 MG, UNK
     Route: 041
     Dates: start: 20120320
  15. BENADRYL [Concomitant]
     Active Substance: DIPHENHYDRAMINE HYDROCHLORIDE
     Dosage: 25 MG, UNK
     Route: 040
     Dates: start: 20120320

REACTIONS (1)
  - Chills [Unknown]

NARRATIVE: CASE EVENT DATE: 20120320
